FAERS Safety Report 16251716 (Version 2)
Quarter: 2019Q3

REPORT INFORMATION
  Report Type: Spontaneous
  Country: CA (occurrence: CA)
  Receive Date: 20190429
  Receipt Date: 20190909
  Transmission Date: 20191004
  Serious: Yes (Hospitalization)
  Sender: FDA-Public Use
  Company Number: CA-PFIZER INC-2019180095

PATIENT
  Age: 69 Year
  Sex: Female

DRUGS (1)
  1. XELJANZ [Suspect]
     Active Substance: TOFACITINIB CITRATE
     Dosage: 5 MG, 2X/DAY
     Route: 048
     Dates: start: 20170101

REACTIONS (2)
  - Lung disorder [Unknown]
  - Infection [Unknown]

NARRATIVE: CASE EVENT DATE: 20170410
